FAERS Safety Report 23254156 (Version 1)
Quarter: 2023Q4

REPORT INFORMATION
  Report Type: Spontaneous
  Country: PL (occurrence: PL)
  Receive Date: 20231202
  Receipt Date: 20231202
  Transmission Date: 20240110
  Serious: Yes (Death, Other)
  Sender: FDA-Public Use
  Company Number: PL-AMGEN-POLSP2023210747

PATIENT

DRUGS (15)
  1. BEVACIZUMAB [Suspect]
     Active Substance: BEVACIZUMAB
     Indication: Neuroblastoma recurrent
     Dosage: UNK
     Route: 065
  2. DINUTUXIMAB BETA [Suspect]
     Active Substance: DINUTUXIMAB BETA
     Indication: Neuroblastoma recurrent
     Dosage: 10 MILLIGRAM/SQ. METER, QD (ON DAYS 1-10 OF EACH 35-DAY CYCLE, FOR UPTO FIVE CYCLES)
     Route: 065
  3. ISOTRETINOIN [Concomitant]
     Active Substance: ISOTRETINOIN
     Indication: Neuroblastoma recurrent
     Dosage: 160 MILLIGRAM/SQ. METER, QD (FOR 14 DAYS UPTO SIX CYCLES)
     Route: 058
  4. VINCRISTINE [Concomitant]
     Active Substance: VINCRISTINE
     Indication: Neuroblastoma
     Dosage: TWO CYCLES
  5. CARBOPLATIN [Concomitant]
     Active Substance: CARBOPLATIN
     Indication: Neuroblastoma
  6. ETOPOSIDE [Concomitant]
     Active Substance: ETOPOSIDE
     Indication: Neuroblastoma
  7. CYCLOPHOSPHAMIDE [Concomitant]
     Active Substance: CYCLOPHOSPHAMIDE
     Indication: Neuroblastoma
  8. TOPOTECAN [Concomitant]
     Active Substance: TOPOTECAN HYDROCHLORIDE
     Indication: Neuroblastoma
     Dosage: TWO CYCLES
  9. DOXORUBICIN [Concomitant]
     Active Substance: DOXORUBICIN
     Indication: Neuroblastoma
     Dosage: TWO CYCLES
  10. CISPLATIN [Concomitant]
     Active Substance: CISPLATIN
     Indication: Neuroblastoma
  11. BUSULFAN [Concomitant]
     Active Substance: BUSULFAN
     Indication: Neuroblastoma
  12. MELPHALAN [Concomitant]
     Active Substance: MELPHALAN
     Indication: Neuroblastoma
  13. GABAPENTIN [Concomitant]
     Active Substance: GABAPENTIN
  14. MORPHINE [Concomitant]
     Active Substance: MORPHINE
  15. METAMIZOLE [Concomitant]
     Active Substance: METAMIZOLE

REACTIONS (48)
  - Neuroblastoma [Fatal]
  - Pulmonary fibrosis [Fatal]
  - Escherichia infection [Fatal]
  - Central nervous system haemorrhage [Fatal]
  - Metastases to bone marrow [Fatal]
  - Metastases to bone [Fatal]
  - Metastases to lymph nodes [Fatal]
  - Metastases to liver [Fatal]
  - Metastases to central nervous system [Fatal]
  - Metastases to lung [Fatal]
  - Alanine aminotransferase increased [Unknown]
  - Aspartate aminotransferase increased [Unknown]
  - Anaemia [Unknown]
  - Infection [Unknown]
  - Hypersensitivity [Unknown]
  - Nausea [Unknown]
  - Thrombocytopenia [Unknown]
  - Neutropenia [Unknown]
  - Vomiting [Unknown]
  - Coeliac disease [Unknown]
  - Ischaemic pancreatitis [Unknown]
  - Hepatitis [Unknown]
  - Cardiac arrest [Unknown]
  - Gastrointestinal obstruction [Unknown]
  - Acute kidney injury [Unknown]
  - Hypotension [Unknown]
  - Capillary leak syndrome [Unknown]
  - Ototoxicity [Unknown]
  - Bronchospasm [Unknown]
  - Adrenal insufficiency [Unknown]
  - Seizure [Unknown]
  - Sepsis [Recovered/Resolved]
  - Anaphylactic reaction [Unknown]
  - Pyrexia [Unknown]
  - Diarrhoea [Unknown]
  - Pain [Unknown]
  - Hypertension [Unknown]
  - Vasoactive intestinal polypeptide increased [Unknown]
  - Thyroid disorder [Unknown]
  - Mydriasis [Unknown]
  - C-reactive protein increased [Recovered/Resolved]
  - Pruritus [Unknown]
  - Sneezing [Unknown]
  - Rash [Unknown]
  - Micturition disorder [Recovered/Resolved]
  - Off label use [Unknown]
  - Rhinorrhoea [Unknown]
  - Blood albumin decreased [Recovered/Resolved]
